FAERS Safety Report 8376104-8 (Version None)
Quarter: 2012Q2

REPORT INFORMATION
  Report Type: 
  Country: None (occurrence: None)
  Receive Date: 20120522
  Receipt Date: 20120515
  Transmission Date: 20120825
  Serious: Yes (Hospitalization)
  Sender: FDA-Public Use
  Company Number: US-BAYER-2012-049101

PATIENT
  Age: 48 Year
  Sex: Female
  Weight: 61.224 kg

DRUGS (9)
  1. LABETALOL HCL [Concomitant]
  2. DROSPIRENONE AND ETHINYL ESTRADIOL [Suspect]
  3. NICARDIPINE HCL [Concomitant]
  4. HYDRALAZINE HCL [Concomitant]
  5. ACETAMINOPHEN [Concomitant]
  6. YAZ [Suspect]
  7. ASPIRIN [Concomitant]
  8. YASMIN [Suspect]
  9. ZOCOR [Concomitant]

REACTIONS (2)
  - CEREBROVASCULAR ACCIDENT [None]
  - DEEP VEIN THROMBOSIS [None]
